FAERS Safety Report 8209037-8 (Version None)
Quarter: 2012Q1

REPORT INFORMATION
  Report Type: 
  Country: None (occurrence: None)
  Receive Date: 20120314
  Receipt Date: 20120307
  Transmission Date: 20120608
  Serious: Yes (Other)
  Sender: FDA-Public Use
  Company Number: US-GILEAD-2012-0051937

PATIENT
  Age: 67 Year
  Sex: Female

DRUGS (4)
  1. LETAIRIS [Suspect]
     Indication: PRODUCT USED FOR UNKNOWN INDICATION
     Dosage: 10 MG, UNK
     Route: 048
     Dates: start: 20080616
  2. FLOLAN [Concomitant]
  3. TREPROSTINIL [Concomitant]
  4. REVATIO [Concomitant]

REACTIONS (2)
  - SYSTEMIC LUPUS ERYTHEMATOSUS [None]
  - SCLERODERMA [None]
